FAERS Safety Report 13728385 (Version 1)
Quarter: 2017Q3

REPORT INFORMATION
  Report Type: Spontaneous
  Country: US (occurrence: US)
  Receive Date: 20170707
  Receipt Date: 20170707
  Transmission Date: 20171127
  Serious: No
  Sender: FDA-Public Use
  Company Number: US-JNJFOC-20151008468

PATIENT
  Sex: Male

DRUGS (10)
  1. RISPERDAL [Suspect]
     Active Substance: RISPERIDONE
     Indication: DEPRESSION
     Dosage: RISPERDAL WAS GIVEN IN TWO PHASES(8-MAR-2008 AND 06-APR-2008 TO 23-APR-2008 FOR 3 MG.
     Route: 048
     Dates: start: 20080308, end: 20080423
  2. RISPERDAL [Suspect]
     Active Substance: RISPERIDONE
     Indication: DEPRESSION
     Route: 048
  3. INVEGA [Suspect]
     Active Substance: PALIPERIDONE
     Indication: DEPRESSION
     Dosage: (19-JUN-2007,29-APR-08 TO 24-MAY-08,28-JUL-08 TO 29-AUG-08 AND 02-DEC-08 TO 06-MAY-09FOR MULTI DOSE.
     Route: 048
     Dates: start: 20070619, end: 20090506
  4. RISPERDAL [Suspect]
     Active Substance: RISPERIDONE
     Indication: SCHIZOPHRENIA
     Route: 048
  5. RISPERDAL [Suspect]
     Active Substance: RISPERIDONE
     Indication: SCHIZOPHRENIA
     Dosage: RISPERDAL WAS GIVEN IN TWO PHASES(8-MAR-2008 AND 06-APR-2008 TO 23-APR-2008 FOR 3 MG.
     Route: 048
     Dates: start: 20080308, end: 20080423
  6. INVEGA [Suspect]
     Active Substance: PALIPERIDONE
     Indication: SCHIZOPHRENIA
     Dosage: (19-JUN-2007,29-APR-08 TO 24-MAY-08,28-JUL-08 TO 29-AUG-08 AND 02-DEC-08 TO 06-MAY-09FOR MULTI DOSE.
     Route: 048
     Dates: start: 20070619, end: 20090506
  7. RISPERDAL [Suspect]
     Active Substance: RISPERIDONE
     Indication: ANXIETY DISORDER
     Dosage: RISPERDAL WAS GIVEN IN TWO PHASES(8-MAR-2008 AND 06-APR-2008 TO 23-APR-2008 FOR 3 MG.
     Route: 048
     Dates: start: 20080308, end: 20080423
  8. INVEGA [Suspect]
     Active Substance: PALIPERIDONE
     Indication: ANXIETY DISORDER
     Dosage: (19-JUN-2007,29-APR-08 TO 24-MAY-08,28-JUL-08 TO 29-AUG-08 AND 02-DEC-08 TO 06-MAY-09FOR MULTI DOSE.
     Route: 048
     Dates: start: 20070619, end: 20090506
  9. DEPAKOTE [Suspect]
     Active Substance: DIVALPROEX SODIUM
     Indication: PRODUCT USED FOR UNKNOWN INDICATION
     Route: 065
  10. RISPERDAL [Suspect]
     Active Substance: RISPERIDONE
     Indication: ANXIETY DISORDER
     Route: 048

REACTIONS (2)
  - Gynaecomastia [Unknown]
  - Abnormal weight gain [Unknown]

NARRATIVE: CASE EVENT DATE: 2008
